FAERS Safety Report 23667689 (Version 1)
Quarter: 2024Q1

REPORT INFORMATION
  Report Type: Spontaneous
  Country: US (occurrence: US)
  Receive Date: 20240325
  Receipt Date: 20240325
  Transmission Date: 20240410
  Serious: Yes (Hospitalization, Other)
  Sender: FDA-Public Use
  Company Number: US-JNJFOC-20240343031

PATIENT

DRUGS (1)
  1. CARVYKTI [Suspect]
     Active Substance: CILTACABTAGENE AUTOLEUCEL
     Indication: Product used for unknown indication
     Route: 065

REACTIONS (5)
  - Cranial nerve paralysis [Unknown]
  - Pneumonia [Unknown]
  - Bacteraemia [Unknown]
  - Encephalopathy [Recovering/Resolving]
  - Cytomegalovirus infection [Unknown]
